FAERS Safety Report 16987051 (Version 3)
Quarter: 2020Q1

REPORT INFORMATION
  Report Type: Spontaneous
  Country: GB (occurrence: GB)
  Receive Date: 20191102
  Receipt Date: 20200123
  Transmission Date: 20200409
  Serious: Yes (Other)
  Sender: FDA-Public Use
  Company Number: GB-SUN PHARMACEUTICAL INDUSTRIES LTD-2019RR-225880

PATIENT
  Age: 66 Year
  Sex: Female

DRUGS (3)
  1. NAPROXEN. [Concomitant]
     Active Substance: NAPROXEN
     Indication: PRODUCT USED FOR UNKNOWN INDICATION
     Dosage: 3 DOSAGE FORMS, DAILY
     Route: 065
     Dates: start: 20190201
  2. NAPROXEN. [Concomitant]
     Active Substance: NAPROXEN
     Dosage: 1 DOSAGE FORM, DAILY
     Route: 065
     Dates: start: 20190201
  3. CODEINE [Suspect]
     Active Substance: CODEINE
     Indication: ANALGESIC THERAPY
     Dosage: 30 MILLIGRAMS, UNK
     Route: 065
     Dates: start: 20190822

REACTIONS (2)
  - Dizziness [Not Recovered/Not Resolved]
  - Headache [Not Recovered/Not Resolved]

NARRATIVE: CASE EVENT DATE: 20190826
